FAERS Safety Report 9757586 (Version 6)
Quarter: 2014Q3

REPORT INFORMATION
  Report Type: Report from Study
  Country: US (occurrence: US)
  Receive Date: 20131216
  Receipt Date: 20140711
  Transmission Date: 20150326
  Serious: Yes (Hospitalization, Other)
  Sender: FDA-Public Use
  Company Number: US-BIOGENIDEC-2007BI011615

PATIENT
  Age: 43 Year
  Sex: Male

DRUGS (4)
  1. AVONEX [Suspect]
     Active Substance: INTERFERON BETA-1A
     Indication: MULTIPLE SCLEROSIS
     Route: 030
  2. AVONEX [Suspect]
     Active Substance: INTERFERON BETA-1A
     Indication: MULTIPLE SCLEROSIS
     Route: 030
     Dates: start: 19960603
  3. AVONEX [Suspect]
     Active Substance: INTERFERON BETA-1A
     Indication: MULTIPLE SCLEROSIS
     Route: 030
     Dates: start: 200311
  4. AVONEX [Suspect]
     Active Substance: INTERFERON BETA-1A
     Indication: MULTIPLE SCLEROSIS
     Route: 030
     Dates: start: 200512

REACTIONS (7)
  - Vertebral lesion [Unknown]
  - Fatigue [Not Recovered/Not Resolved]
  - Prostate cancer [Not Recovered/Not Resolved]
  - Back pain [Not Recovered/Not Resolved]
  - Lung neoplasm malignant [Recovered/Resolved]
  - Pneumonia [Recovered/Resolved]
  - Scar [Unknown]

NARRATIVE: CASE EVENT DATE: 1996
